FAERS Safety Report 12221992 (Version 1)
Quarter: 2016Q1

REPORT INFORMATION
  Report Type: Spontaneous
  Country: US (occurrence: US)
  Receive Date: 20160330
  Receipt Date: 20160330
  Transmission Date: 20160526
  Serious: No
  Sender: FDA-Public Use
  Company Number: US-MYLANLABS-2015M1015242

PATIENT
  Age: 61 Year
  Sex: Female

DRUGS (2)
  1. FENTANYL TRANSDERMAL SYSTEM [Suspect]
     Active Substance: FENTANYL
     Indication: SPINAL PAIN
     Dosage: 25 ?G/HR, CHANGED Q72H
     Route: 062
     Dates: start: 201504
  2. FENTANYL. [Suspect]
     Active Substance: FENTANYL
     Indication: SPINAL PAIN
     Dosage: 12 ?G/HR, CHANGED Q72H
     Route: 062
     Dates: start: 201502, end: 201504

REACTIONS (1)
  - Breakthrough pain [Recovering/Resolving]

NARRATIVE: CASE EVENT DATE: 201502
